FAERS Safety Report 20434261 (Version 3)
Quarter: 2022Q2

REPORT INFORMATION
  Report Type: Spontaneous
  Country: JP (occurrence: JP)
  Receive Date: 20220206
  Receipt Date: 20220406
  Transmission Date: 20220721
  Serious: Yes (Hospitalization, Other)
  Sender: FDA-Public Use
  Company Number: JP-NOVARTISPH-NVSC2022JP023936

PATIENT
  Age: 70 Year
  Sex: Female

DRUGS (3)
  1. DEXAMETHASONE [Suspect]
     Active Substance: DEXAMETHASONE
     Indication: COVID-19
     Dosage: 6MG/DAY, FROM DAY 5 TO DAY 13 AFTER DEVELOPMENT OF CORONAVIRUS INFECTION
     Route: 041
  2. REMDESIVIR [Suspect]
     Active Substance: REMDESIVIR
     Indication: COVID-19
     Dosage: 200MG/DAY, DAY 5 AFTER DEVELOPMENT OF CORONAVIRUS INFECTION
     Route: 041
  3. REMDESIVIR [Suspect]
     Active Substance: REMDESIVIR
     Dosage: 100MG/DAY, FROM DAY 6 TO DAY 9 AFTER DEVELOPMENT OF CORONAVIRUS INFECTION
     Route: 041

REACTIONS (1)
  - Pancreatitis acute [Recovered/Resolved]
